FAERS Safety Report 5746522-2 (Version None)
Quarter: 2008Q2

REPORT INFORMATION
  Report Type: 
  Country: None (occurrence: None)
  Receive Date: 20080522
  Receipt Date: 20070823
  Transmission Date: 20081010
  Serious: Yes (Death, Other)
  Sender: FDA-Public Use
  Company Number: US-BRISTOL-MYERS SQUIBB COMPANY-13855945

PATIENT
  Age: 62 Year
  Sex: Female

DRUGS (5)
  1. CYCLOPHOSPHAMIDE [Suspect]
     Indication: BREAST CANCER METASTATIC
     Dosage: 3 CYCLES IN 3 WEEKS.
     Route: 042
     Dates: start: 20070420, end: 20070601
  2. TAXOTERE [Suspect]
     Indication: BREAST CANCER METASTATIC
     Route: 042
  3. NEULASTA [Concomitant]
     Dosage: 6 MG SQ
  4. ZOMETA [Concomitant]
     Route: 042
  5. COMPAZINE [Concomitant]
     Route: 048

REACTIONS (5)
  - CARDIOMYOPATHY [None]
  - HEPATIC FAILURE [None]
  - MALAISE [None]
  - MALIGNANT NEOPLASM PROGRESSION [None]
  - OEDEMA PERIPHERAL [None]
